FAERS Safety Report 5923165-9 (Version None)
Quarter: 2008Q4

REPORT INFORMATION
  Report Type: 
  Country: None (occurrence: None)
  Receive Date: 20081020
  Receipt Date: 20080922
  Transmission Date: 20090506
  Serious: No
  Sender: FDA-Public Use
  Company Number: US-BAYER-200829186NA

PATIENT
  Sex: Male

DRUGS (3)
  1. LEVITRA [Suspect]
     Indication: DRUG USE FOR UNKNOWN INDICATION
  2. METOPROLOL TARTRATE [Concomitant]
  3. LOSARTAN [Concomitant]

REACTIONS (2)
  - ADVERSE EVENT [None]
  - HEART RATE INCREASED [None]
